FAERS Safety Report 23980531 (Version 1)
Quarter: 2024Q2

REPORT INFORMATION
  Report Type: Spontaneous
  Country: US (occurrence: US)
  Receive Date: 20240617
  Receipt Date: 20240617
  Transmission Date: 20240715
  Serious: No
  Sender: FDA-Public Use
  Company Number: US-ALKEM LABORATORIES LIMITED-US-ALKEM-2024-04663

PATIENT
  Age: 20 Year
  Sex: Female

DRUGS (22)
  1. LEVETIRACETAM [Suspect]
     Active Substance: LEVETIRACETAM
     Indication: Status epilepticus
     Dosage: 2500 MG/DAY
     Route: 065
  2. LEVETIRACETAM [Suspect]
     Active Substance: LEVETIRACETAM
     Dosage: 6000 MG/DAY
     Route: 065
  3. CLOBAZAM [Suspect]
     Active Substance: CLOBAZAM
     Indication: Status epilepticus
     Dosage: 20 MG/DAY
     Route: 065
  4. CLOBAZAM [Suspect]
     Active Substance: CLOBAZAM
     Dosage: 30 MG/DAY
     Route: 065
  5. CLOBAZAM [Suspect]
     Active Substance: CLOBAZAM
     Dosage: 40 MG/DAY
     Route: 065
  6. VALPROATE [Suspect]
     Active Substance: VALPROIC ACID
     Indication: Status epilepticus
     Dosage: 2000 MG/DAY
     Route: 065
  7. VALPROATE [Suspect]
     Active Substance: VALPROIC ACID
     Dosage: 9000 MG/DAY
     Route: 065
  8. VALPROATE [Suspect]
     Active Substance: VALPROIC ACID
     Dosage: 4000 MG/DAY
     Route: 065
  9. LORAZEPAM [Concomitant]
     Active Substance: LORAZEPAM
     Indication: Status epilepticus
     Dosage: 4 MG/DAY
     Route: 065
  10. PROPOFOL [Concomitant]
     Active Substance: PROPOFOL
     Indication: Status epilepticus
     Dosage: 100 MICROGRAM/KILOGRAM/MIN
     Route: 065
  11. MIDAZOLAM [Concomitant]
     Active Substance: MIDAZOLAM
     Indication: Status epilepticus
     Dosage: 30 MILLIGRAM/HOUR
     Route: 065
  12. PENTOBARBITAL [Concomitant]
     Active Substance: PENTOBARBITAL
     Indication: Status epilepticus
     Dosage: 2.5 MILLIGRAM/KILOGRAM/HOUR
     Route: 065
  13. CANNABIDIOL [Concomitant]
     Active Substance: CANNABIDIOL
     Indication: Status epilepticus
     Dosage: 20 MILLIGRAM/KILOGRAM (BETWEEN DAYS)
     Route: 065
  14. FELBAMATE [Concomitant]
     Active Substance: FELBAMATE
     Indication: Status epilepticus
     Dosage: 1800 MG/DAY
     Route: 065
  15. KETAMINE [Concomitant]
     Active Substance: KETAMINE
     Indication: Status epilepticus
     Dosage: UNK (6 MILLIGRAM/KILOGRAM/HOUR)
     Route: 065
  16. PHENOBARBITAL [Concomitant]
     Active Substance: PHENOBARBITAL
     Indication: Status epilepticus
     Dosage: 200 MG/DAY
     Route: 065
  17. PHENOBARBITAL [Concomitant]
     Active Substance: PHENOBARBITAL
     Dosage: 194.4 MG/DAY
     Route: 065
  18. BRIVARACETAM [Concomitant]
     Active Substance: BRIVARACETAM
     Indication: Status epilepticus
     Dosage: 300 MG/DAY
     Route: 065
  19. BRIVARACETAM [Concomitant]
     Active Substance: BRIVARACETAM
     Dosage: 200 MG/DAY
     Route: 065
  20. FENFLURAMINE [Concomitant]
     Active Substance: FENFLURAMINE
     Indication: Status epilepticus
     Dosage: 0.7 MILLIGRAM/KILOGRAM (BETWEEN DAYS)
     Route: 065
  21. FENFLURAMINE [Concomitant]
     Active Substance: FENFLURAMINE
     Dosage: 30 MG/DAY
     Route: 065
  22. FENFLURAMINE [Concomitant]
     Active Substance: FENFLURAMINE
     Dosage: 0.6 MILLIGRAM/KILOGRAM, QD
     Route: 065

REACTIONS (1)
  - Treatment failure [Unknown]
